FAERS Safety Report 9698659 (Version 4)
Quarter: 2014Q3

REPORT INFORMATION
  Report Type: Spontaneous
  Country: US (occurrence: US)
  Receive Date: 20131120
  Receipt Date: 20140813
  Transmission Date: 20150326
  Serious: Yes (Life-Threatening, Hospitalization)
  Sender: FDA-Public Use
  Company Number: US-BAYER-2013-140440

PATIENT
  Age: 29 Year
  Sex: Female
  Weight: 61 kg

DRUGS (3)
  1. PAXIL [Concomitant]
     Active Substance: PAROXETINE HYDROCHLORIDE
     Dosage: UNK
     Dates: start: 2011, end: 2013
  2. MIRENA [Suspect]
     Active Substance: LEVONORGESTREL
     Indication: MENORRHAGIA
     Dosage: UNK UNK, CONT
  3. MIRENA [Suspect]
     Active Substance: LEVONORGESTREL
     Indication: CONTRACEPTION
     Dosage: 20 MCG/24HR, CONT
     Route: 015
     Dates: start: 200806, end: 20130611

REACTIONS (11)
  - Embedded device [Not Recovered/Not Resolved]
  - Device issue [None]
  - General physical health deterioration [Not Recovered/Not Resolved]
  - Ovarian cyst [None]
  - Injury [Not Recovered/Not Resolved]
  - Emotional distress [None]
  - Abdominal pain lower [Not Recovered/Not Resolved]
  - Anhedonia [None]
  - Device dislocation [Not Recovered/Not Resolved]
  - Anxiety [None]
  - Device defective [None]

NARRATIVE: CASE EVENT DATE: 201001
